FAERS Safety Report 8105795-1 (Version None)
Quarter: 2012Q1

REPORT INFORMATION
  Report Type: 
  Country: None (occurrence: None)
  Receive Date: 20120201
  Receipt Date: 20120130
  Transmission Date: 20120608
  Serious: Yes (Other)
  Sender: FDA-Public Use
  Company Number: US-PFIZER INC-2012027313

PATIENT
  Sex: Female
  Weight: 56.689 kg

DRUGS (3)
  1. CHANTIX [Suspect]
     Indication: SMOKING CESSATION THERAPY
     Dosage: UNK
     Dates: start: 20120107, end: 20120121
  2. TYLENOL W/ CODEINE NO. 3 [Concomitant]
     Indication: BACK PAIN
     Dosage: UNK, DAILY
  3. NAPROXEN (ALEVE) [Concomitant]
     Dosage: UNK, DAILY

REACTIONS (3)
  - DEPRESSION [None]
  - IRRITABILITY [None]
  - CRYING [None]
